FAERS Safety Report 20060178 (Version 1)
Quarter: 2021Q4

REPORT INFORMATION
  Report Type: Report from Study
  Country: US (occurrence: US)
  Receive Date: 20211111
  Receipt Date: 20211111
  Transmission Date: 20220303
  Serious: Yes (Other)
  Sender: FDA-Public Use
  Company Number: US-ABBVIE-21K-163-3719476-00

PATIENT
  Sex: Female

DRUGS (1)
  1. VENCLEXTA [Suspect]
     Active Substance: VENETOCLAX
     Indication: B-cell prolymphocytic leukaemia
     Dosage: TAKE 4 TABLETS (400MG) BY MOUTH DAILY
     Route: 048

REACTIONS (3)
  - Hospice care [Unknown]
  - Off label use [Unknown]
  - COVID-19 [Unknown]
